FAERS Safety Report 4761319-8 (Version None)
Quarter: 2005Q3

REPORT INFORMATION
  Report Type: 
  Country: None (occurrence: None)
  Receive Date: 20050901
  Receipt Date: 20050420
  Transmission Date: 20060218
  Serious: Yes (Hospitalization)
  Sender: FDA-Public Use
  Company Number: 2005FR-00253

PATIENT
  Age: 79 Year
  Sex: Female

DRUGS (6)
  1. ASPIRIN [Suspect]
     Indication: ANTIPLATELET THERAPY
     Dosage: 75 MG ORAL
     Route: 048
  2. ASPIRIN [Suspect]
     Indication: ATRIAL FIBRILLATION
     Dosage: 75 MG ORAL
     Route: 048
  3. CO-AMILOFRUSE [Concomitant]
  4. AMIODARONE [Concomitant]
  5. SPIRIVA [Concomitant]
  6. SERETIDE [Concomitant]

REACTIONS (1)
  - GASTRITIS [None]
